FAERS Safety Report 6104342-3 (Version None)
Quarter: 2009Q1

REPORT INFORMATION
  Report Type: 
  Country: None (occurrence: None)
  Receive Date: 20090305
  Receipt Date: 20090223
  Transmission Date: 20090719
  Serious: Yes (Other)
  Sender: FDA-Public Use
  Company Number: CA-PFIZER INC-2009169902

PATIENT

DRUGS (8)
  1. REACTINE [Suspect]
     Route: 048
  2. MICARDIS [Concomitant]
     Indication: HYPERTENSION
     Dosage: 80 MG, 1X/DAY
  3. HYDROCHLOROTHIAZIDE [Concomitant]
     Indication: HYPERTENSION
     Dosage: 25 MG, 1X/DAY
  4. VITAMIN D [Concomitant]
     Dosage: UNK
  5. DIDRONEL [Concomitant]
     Indication: BONE DISORDER
     Dosage: UNK
  6. ENTROPHEN [Concomitant]
     Dosage: 325 MG, 1X/DAY
  7. LIPITOR [Concomitant]
     Indication: HYPERCHOLESTEROLAEMIA
     Dosage: 25 MG, 1X/DAY
  8. ZOPICLONE [Concomitant]
     Dosage: 7.5 MG, 1X/DAY EVERY NIGHT

REACTIONS (1)
  - HYPOAESTHESIA FACIAL [None]
